FAERS Safety Report 5467259-3 (Version None)
Quarter: 2007Q3

REPORT INFORMATION
  Report Type: 
  Country: None (occurrence: None)
  Receive Date: 20070925
  Receipt Date: 20070921
  Transmission Date: 20080115
  Serious: Yes (Life-Threatening, Hospitalization)
  Sender: FDA-Public Use
  Company Number: PHBS2007AR10654

PATIENT
  Age: 52 Year
  Sex: Female

DRUGS (3)
  1. ZELNORM [Suspect]
     Indication: IRRITABLE BOWEL SYNDROME
     Route: 065
  2. CHOLESTEROL- AND TRIGLYCERIDE REDUCERS [Concomitant]
     Indication: HYPERCHOLESTEROLAEMIA
  3. ANALGESICS [Concomitant]
     Route: 042

REACTIONS (6)
  - ARTERIOSPASM CORONARY [None]
  - CARDIAC ARREST [None]
  - CARDIAC DISORDER [None]
  - CATHETERISATION CARDIAC [None]
  - RESUSCITATION [None]
  - SCIATICA [None]
